FAERS Safety Report 8943802 (Version 1)
Quarter: 2012Q4

REPORT INFORMATION
  Report Type: Report from Study
  Country: GB (occurrence: US)
  Receive Date: 20121204
  Receipt Date: 20121204
  Transmission Date: 20130627
  Serious: Yes (Death, Hospitalization)
  Sender: FDA-Public Use
  Company Number: US-BRISTOL-MYERS SQUIBB COMPANY-17158155

PATIENT
  Age: 74 Year
  Sex: Male
  Weight: 120 kg

DRUGS (16)
  1. COUMADIN [Suspect]
     Indication: ATRIAL FIBRILLATION
     Dosage: 24Apr2003-Unk
30Nov06-unk
     Dates: start: 20030424
  2. MIRCERA [Concomitant]
     Indication: NEPHROGENIC ANAEMIA
     Dosage: 200mcg:25Aug05-unk
140mcg:30Oct08-30Oct08 .Soln form
     Route: 058
     Dates: start: 20050825, end: 20081030
  3. SIMVASTATIN [Concomitant]
     Dates: start: 20070315
  4. DIOVAN [Concomitant]
     Dates: start: 20070222
  5. CLARINEX [Concomitant]
     Dates: start: 20061221
  6. BOOST [Concomitant]
     Dosage: 1df=1/2can
     Dates: start: 20050719
  7. PERI-COLACE [Concomitant]
     Dates: start: 20050415
  8. SENOKOT [Concomitant]
     Dosage: tab
     Dates: start: 20050524
  9. OXYIR [Concomitant]
     Dates: start: 20050322, end: 20081112
  10. HUMULIN 70/30 [Concomitant]
     Dosage: 1df=12units
     Dates: start: 20030325, end: 20081112
  11. ASA [Concomitant]
     Dosage: Formulation-EC ASA
     Dates: start: 20030115, end: 20081112
  12. PHOSLO [Concomitant]
     Dosage: tab
     Dates: start: 20070215
  13. PARICALCITOL [Concomitant]
     Dates: start: 20031211
  14. KLONOPIN [Concomitant]
     Dates: start: 20080814, end: 20081112
  15. LYRICA [Concomitant]
     Dates: start: 20080607, end: 20081112
  16. TYLENOL PM [Concomitant]
     Dosage: tab
     Dates: start: 20080820, end: 20081112

REACTIONS (3)
  - Cardiopulmonary failure [Fatal]
  - Gangrene [Not Recovered/Not Resolved]
  - Calciphylaxis [Not Recovered/Not Resolved]
